FAERS Safety Report 8938028 (Version 1)
Quarter: 2012Q4

REPORT INFORMATION
  Report Type: Spontaneous
  Country: IT (occurrence: None)
  Receive Date: 20121121
  Receipt Date: 20121121
  Transmission Date: 20130627
  Serious: Yes (Hospitalization)
  Sender: FDA-Public Use
  Company Number: INT_00151_2012

PATIENT
  Age: 42 Year
  Sex: Male

DRUGS (2)
  1. CEFTRIAXONE (CEFTRIAXONE) [Suspect]
     Indication: TOOTH ABSCESS
     Route: 030
     Dates: start: 20120711, end: 20120711
  2. AUGMENTIN [Concomitant]

REACTIONS (4)
  - Hyperhidrosis [None]
  - Syncope [None]
  - Malaise [None]
  - Blood pressure diastolic decreased [None]
